FAERS Safety Report 5956616-4 (Version None)
Quarter: 2008Q4

REPORT INFORMATION
  Report Type: 
  Country: None (occurrence: None)
  Receive Date: 20081118
  Receipt Date: 20081113
  Transmission Date: 20090506
  Serious: Yes (Hospitalization)
  Sender: FDA-Public Use
  Company Number: US-MERCK-0809USA00993

PATIENT
  Age: 71 Year
  Sex: Female

DRUGS (7)
  1. VYTORIN [Suspect]
     Indication: BLOOD CHOLESTEROL
     Route: 048
     Dates: start: 20060101
  2. DIGITEK [Suspect]
     Route: 065
  3. [THERAPY UNSPECIFIED] [Concomitant]
     Indication: FLUID RETENTION
     Route: 065
  4. [THERAPY UNSPECIFIED] [Concomitant]
     Indication: DIABETES MELLITUS
     Route: 065
  5. [THERAPY UNSPECIFIED] [Concomitant]
     Indication: GASTROOESOPHAGEAL REFLUX DISEASE
     Route: 065
  6. POTASSIUM (UNSPECIFIED) [Concomitant]
     Route: 065
  7. WARFARIN [Concomitant]
     Route: 065

REACTIONS (6)
  - BENIGN CARDIAC NEOPLASM [None]
  - CARDIAC DISORDER [None]
  - CARDIAC FLUTTER [None]
  - DYSPNOEA [None]
  - FLUID RETENTION [None]
  - MUSCULOSKELETAL PAIN [None]
